FAERS Safety Report 23086816 (Version 2)
Quarter: 2023Q4

REPORT INFORMATION
  Report Type: Spontaneous
  Country: GB (occurrence: GB)
  Receive Date: 20231020
  Receipt Date: 20231027
  Transmission Date: 20240110
  Serious: Yes (Disabling, Other)
  Sender: FDA-Public Use
  Company Number: GB-MHRA-MED-202309251604357480-WLFRG

PATIENT
  Sex: Female

DRUGS (1)
  1. QUETIAPINE [Suspect]
     Active Substance: QUETIAPINE
     Indication: Product used for unknown indication
     Dosage: 50 MILLIGRAM, ONCE A DAY(50MG AT NIGHT (25MG X 2))
     Route: 065
     Dates: start: 2021, end: 20230921

REACTIONS (9)
  - Muscle twitching [Unknown]
  - Phantom shocks [Unknown]
  - Hallucination [Recovering/Resolving]
  - Anosmia [Unknown]
  - Panic attack [Recovering/Resolving]
  - Poor quality sleep [Recovering/Resolving]
  - Delusional perception [Unknown]
  - Medication error [Unknown]
  - Syncope [Unknown]

NARRATIVE: CASE EVENT DATE: 20210101
